FAERS Safety Report 9029314 (Version 2)
Quarter: 2013Q1

REPORT INFORMATION
  Report Type: Spontaneous
  Country: US (occurrence: US)
  Receive Date: 20130124
  Receipt Date: 20130201
  Transmission Date: 20140127
  Serious: Yes (Other)
  Sender: FDA-Public Use
  Company Number: US-MEDICIS-2013P1000677

PATIENT
  Age: 17 Year
  Sex: Male

DRUGS (2)
  1. SOLODYN [Suspect]
     Indication: ACNE CYSTIC
     Route: 048
     Dates: start: 20121211, end: 20121231
  2. CLINDAMYCIN [Concomitant]

REACTIONS (3)
  - Depressed mood [Recovering/Resolving]
  - Suicide attempt [Recovered/Resolved]
  - Alcohol use [None]
